FAERS Safety Report 18335772 (Version 4)
Quarter: 2021Q2

REPORT INFORMATION
  Report Type: Report from Study
  Country: None (occurrence: IT)
  Receive Date: 20201001
  Receipt Date: 20210421
  Transmission Date: 20210717
  Serious: Yes (Hospitalization)
  Sender: FDA-Public Use
  Company Number: IT-ABBVIE-20P-083-3581268-00

PATIENT
  Age: 64 Year
  Sex: Female
  Weight: 41 kg

DRUGS (3)
  1. RISANKIZUMAB [Suspect]
     Active Substance: RISANKIZUMAB
     Indication: CROHN^S DISEASE
     Route: 058
     Dates: start: 20200311, end: 20200311
  2. RISANKIZUMAB [Suspect]
     Active Substance: RISANKIZUMAB
     Indication: CROHN^S DISEASE
     Route: 058
     Dates: start: 20200506, end: 20200701
  3. TACHIPIRINA [Concomitant]
     Active Substance: ACETAMINOPHEN
     Indication: PYREXIA
     Route: 048
     Dates: start: 20200801

REACTIONS (2)
  - Respiratory failure [Recovered/Resolved]
  - Pneumonia bacterial [Recovered/Resolved]

NARRATIVE: CASE EVENT DATE: 20200812
